FAERS Safety Report 4725937-5 (Version None)
Quarter: 2005Q3

REPORT INFORMATION
  Report Type: 
  Country: None (occurrence: None)
  Receive Date: 20050727
  Receipt Date: 20050606
  Transmission Date: 20060218
  Serious: Yes (Hospitalization, Disabling, Other)
  Sender: FDA-Public Use
  Company Number: US-GLAXOSMITHKLINE-A0561380A

PATIENT
  Age: 74 Year
  Sex: Male
  Weight: 108.2 kg

DRUGS (7)
  1. ADVAIR DISKUS 100/50 [Suspect]
     Indication: ASTHMA
     Dosage: 1PUFF TWICE PER DAY
     Route: 055
     Dates: start: 20021021
  2. THEOPHYLLINE [Concomitant]
     Dosage: 400MG TWICE PER DAY
  3. COZAAR [Concomitant]
     Dosage: 5MG PER DAY
  4. METOPROLOL [Concomitant]
     Dosage: 50MG PER DAY
  5. ZOCOR [Concomitant]
     Dosage: 7.5MG PER DAY
  6. COUMADIN [Concomitant]
     Dosage: 7.5MG PER DAY
  7. MAGNESIUM OXIDE [Concomitant]
     Dosage: 400MG TWICE PER DAY

REACTIONS (3)
  - COUGH [None]
  - LUNG INFECTION [None]
  - PHARMACEUTICAL PRODUCT COMPLAINT [None]
